FAERS Safety Report 9203790 (Version 2)
Quarter: 2013Q2

REPORT INFORMATION
  Report Type: Spontaneous
  Country: US (occurrence: US)
  Receive Date: 20130402
  Receipt Date: 20130501
  Transmission Date: 20140414
  Serious: Yes (Hospitalization, Other)
  Sender: FDA-Public Use
  Company Number: US-SANOFI-AVENTIS-2013SA032701

PATIENT
  Age: 72 Year
  Sex: Female
  Weight: 152 kg

DRUGS (2)
  1. CLOPIDOGREL BISULFATE [Suspect]
     Indication: CEREBROVASCULAR ACCIDENT
     Dates: end: 201302
  2. PLAVIX [Suspect]
     Indication: CEREBROVASCULAR ACCIDENT
     Dates: start: 1999, end: 20130301

REACTIONS (4)
  - Transient ischaemic attack [Unknown]
  - Dyspnoea [Unknown]
  - Chest pain [Unknown]
  - Gait disturbance [Unknown]
